FAERS Safety Report 25158764 (Version 2)
Quarter: 2025Q3

REPORT INFORMATION
  Report Type: Report from Study
  Country: US (occurrence: US)
  Receive Date: 20250404
  Receipt Date: 20250809
  Transmission Date: 20251020
  Serious: Yes (Other)
  Sender: ALEXION PHARMACEUTICALS
  Company Number: US-AstraZeneca-CH-00838424A

PATIENT
  Sex: Male

DRUGS (1)
  1. ACALABRUTINIB [Suspect]
     Active Substance: ACALABRUTINIB
     Indication: Chronic lymphocytic leukaemia
     Dosage: 100 MILLIGRAM, BID

REACTIONS (8)
  - Lymphoma [Unknown]
  - Blood pressure decreased [Unknown]
  - Pain [Unknown]
  - Large intestine polyp [Unknown]
  - Headache [Unknown]
  - Arthralgia [Unknown]
  - Fatigue [Unknown]
  - Peripheral swelling [Unknown]
